FAERS Safety Report 20764611 (Version 2)
Quarter: 2022Q2

REPORT INFORMATION
  Report Type: Report from Study
  Country: FR (occurrence: FR)
  Receive Date: 20220428
  Receipt Date: 20220616
  Transmission Date: 20220721
  Serious: Yes (Other)
  Sender: FDA-Public Use
  Company Number: FR-NOVARTISPH-NVSC2022FR043125

PATIENT
  Sex: Female

DRUGS (2)
  1. TABRECTA [Suspect]
     Active Substance: CAPMATINIB
     Indication: Non-small cell lung cancer stage IV
     Dosage: 400 MG, BID (2 TABS OF 200 MG BID, MORNING EVENING)
     Route: 065
     Dates: start: 20220121, end: 20220421
  2. TABRECTA [Suspect]
     Active Substance: CAPMATINIB
     Dosage: 800 MG, QD
     Route: 065
     Dates: start: 20220421

REACTIONS (5)
  - Cholestasis [Unknown]
  - Hepatic cytolysis [Unknown]
  - Gamma-glutamyltransferase increased [Unknown]
  - Oedema peripheral [Unknown]
  - Creatinine renal clearance decreased [Unknown]

NARRATIVE: CASE EVENT DATE: 20220218
